FAERS Safety Report 7275209-2 (Version None)
Quarter: 2011Q1

REPORT INFORMATION
  Report Type: 
  Country: None (occurrence: None)
  Receive Date: 20110204
  Receipt Date: 20110126
  Transmission Date: 20110831
  Serious: Yes (Hospitalization)
  Sender: FDA-Public Use
  Company Number: PHHY2010US89409

PATIENT
  Sex: Female

DRUGS (1)
  1. LAMISIL [Suspect]
     Indication: ONYCHOMYCOSIS
     Dosage: 250 MG, QD
     Route: 048
     Dates: start: 20101215, end: 20101220

REACTIONS (5)
  - SYNCOPE [None]
  - URTICARIA [None]
  - RASH [None]
  - MUSCULOSKELETAL DISCOMFORT [None]
  - DIZZINESS [None]
